FAERS Safety Report 17925840 (Version 2)
Quarter: 2020Q3

REPORT INFORMATION
  Report Type: Spontaneous
  Country: US (occurrence: US)
  Receive Date: 20200623
  Receipt Date: 20200710
  Transmission Date: 20201103
  Serious: No
  Sender: FDA-Public Use
  Company Number: US-JNJFOC-20200610026

PATIENT
  Sex: Female

DRUGS (1)
  1. ZYRTEC [Suspect]
     Active Substance: CETIRIZINE HYDROCHLORIDE
     Indication: PRODUCT USED FOR UNKNOWN INDICATION
     Dosage: TAKING FOR A FEW DAYS
     Route: 065

REACTIONS (4)
  - Product lot number issue [Unknown]
  - Suspected counterfeit product [Unknown]
  - Exposure during pregnancy [Unknown]
  - Counterfeit product administered [Unknown]
